FAERS Safety Report 7421953-3 (Version None)
Quarter: 2011Q2

REPORT INFORMATION
  Report Type: 
  Country: None (occurrence: None)
  Receive Date: 20110418
  Receipt Date: 20110411
  Transmission Date: 20111010
  Serious: Yes (Hospitalization, Disabling)
  Sender: FDA-Public Use
  Company Number: US-ELI_LILLY_AND_COMPANY-US201104003682

PATIENT
  Sex: Female

DRUGS (5)
  1. HUMALOG [Suspect]
     Dosage: 8 U, OTHER
  2. HUMALOG [Suspect]
     Dosage: 7 U, EACH EVENING
  3. HUMALOG [Suspect]
     Indication: DIABETES MELLITUS
     Dosage: 3 U, EACH MORNING
  4. LANTUS [Concomitant]
     Dosage: UNK, EACH EVENING
  5. HUMALOG [Suspect]

REACTIONS (6)
  - BLOOD GLUCOSE INCREASED [None]
  - VISUAL IMPAIRMENT [None]
  - BLOOD GLUCOSE DECREASED [None]
  - THIRST [None]
  - INCORRECT DOSE ADMINISTERED [None]
  - SPINAL COLUMN STENOSIS [None]
